FAERS Safety Report 8321503-3 (Version None)
Quarter: 2012Q2

REPORT INFORMATION
  Report Type: 
  Country: None (occurrence: None)
  Receive Date: 20120430
  Receipt Date: 20120430
  Transmission Date: 20120825
  Serious: No
  Sender: FDA-Public Use
  Company Number: None

PATIENT
  Age: 58 Year
  Sex: Male
  Weight: 68.038 kg

DRUGS (1)
  1. MUCINEX DM [Suspect]
     Indication: COUGH
     Route: 048
     Dates: start: 20120427, end: 20120427

REACTIONS (3)
  - BLOOD PRESSURE INCREASED [None]
  - DRUG INTERACTION [None]
  - FEELING ABNORMAL [None]
